FAERS Safety Report 6808020-4 (Version None)
Quarter: 2010Q2

REPORT INFORMATION
  Report Type: 
  Country: None (occurrence: None)
  Receive Date: 20100629
  Receipt Date: 20090610
  Transmission Date: 20101027
  Serious: No
  Sender: FDA-Public Use
  Company Number: US-PFIZER INC-2009187283

PATIENT
  Sex: Female

DRUGS (3)
  1. SPIRONOLACTONE [Suspect]
     Dosage: 50 MG, UNK
  2. BUMETANIDE [Concomitant]
  3. HYDROCHLOROTHIAZIDE [Concomitant]

REACTIONS (7)
  - AMNESIA [None]
  - ASTHENIA [None]
  - DIZZINESS [None]
  - FATIGUE [None]
  - FEAR [None]
  - SOMNOLENCE [None]
  - VISUAL IMPAIRMENT [None]
